FAERS Safety Report 8964818 (Version 11)
Quarter: 2016Q1

REPORT INFORMATION
  Report Type: Spontaneous
  Country: CA (occurrence: CA)
  Receive Date: 20121213
  Receipt Date: 20160325
  Transmission Date: 20160526
  Serious: Yes (Hospitalization, Other)
  Sender: FDA-Public Use
  Company Number: CA-ROCHE-1168076

PATIENT
  Age: 12 Year
  Sex: Female

DRUGS (4)
  1. XOLAIR [Suspect]
     Active Substance: OMALIZUMAB
     Route: 058
     Dates: start: 20160316
  2. ALVESCO [Concomitant]
     Active Substance: CICLESONIDE
  3. SYMBICORT [Concomitant]
     Active Substance: BUDESONIDE\FORMOTEROL FUMARATE DIHYDRATE
  4. XOLAIR [Suspect]
     Active Substance: OMALIZUMAB
     Indication: ASTHMA
     Route: 058
     Dates: start: 20121026

REACTIONS (11)
  - Anaemia [Unknown]
  - Injection site discharge [Unknown]
  - Bronchitis [Unknown]
  - Sneezing [Unknown]
  - Nasopharyngitis [Unknown]
  - Influenza [Unknown]
  - Asthma [Unknown]
  - Carditis [Unknown]
  - Loss of consciousness [Unknown]
  - Pneumonia [Unknown]
  - Injection site haemorrhage [Unknown]

NARRATIVE: CASE EVENT DATE: 20130411
